FAERS Safety Report 18580961 (Version 2)
Quarter: 2020Q4

REPORT INFORMATION
  Report Type: Spontaneous
  Country: US (occurrence: US)
  Receive Date: 20201204
  Receipt Date: 20201222
  Transmission Date: 20210114
  Serious: Yes (Other)
  Sender: FDA-Public Use
  Company Number: US-ALLERGAN-2046848US

PATIENT
  Sex: Female
  Weight: 12 kg

DRUGS (1)
  1. CEFTAROLINE FOSAMIL UNK [Suspect]
     Active Substance: CEFTAROLINE FOSAMIL
     Indication: STAPHYLOCOCCAL INFECTION
     Dosage: 8 MG/KG, Q8HR
     Route: 042

REACTIONS (2)
  - Staphylococcal infection [Unknown]
  - Off label use [Unknown]
